FAERS Safety Report 6361350-5 (Version None)
Quarter: 2009Q3

REPORT INFORMATION
  Report Type: 
  Country: None (occurrence: None)
  Receive Date: 20090918
  Receipt Date: 20090911
  Transmission Date: 20100115
  Serious: Yes (Life-Threatening, Hospitalization, Other)
  Sender: FDA-Public Use
  Company Number: B0591560A

PATIENT
  Sex: Female

DRUGS (7)
  1. VALTREX [Suspect]
     Indication: HERPES SIMPLEX
     Dosage: 500MG TWICE PER DAY
     Route: 048
     Dates: start: 20090826, end: 20090830
  2. PREDONINE [Concomitant]
     Indication: RHEUMATOID ARTHRITIS
     Dosage: 5MG PER DAY
     Route: 048
  3. DIOVAN [Concomitant]
     Dosage: 20MG PER DAY
     Route: 048
     Dates: start: 20090901
  4. FLUITRAN [Concomitant]
     Dosage: .5MG PER DAY
     Route: 048
     Dates: start: 20090901
  5. FUROSEMIDE [Concomitant]
     Dosage: 10MG PER DAY
     Route: 048
     Dates: start: 20090901
  6. LUVOX [Concomitant]
     Indication: DEPRESSION
     Dosage: 75MG PER DAY
     Route: 048
     Dates: start: 20090901
  7. RHEUMATREX [Concomitant]
     Indication: RHEUMATOID ARTHRITIS
     Dosage: 4MG PER DAY
     Route: 048

REACTIONS (6)
  - DISSEMINATED INTRAVASCULAR COAGULATION [None]
  - HAEMATURIA [None]
  - HAEMORRHAGE [None]
  - HAEMORRHAGIC DIATHESIS [None]
  - LEUKOPENIA [None]
  - URINARY TRACT INFECTION [None]
